FAERS Safety Report 8568278-0 (Version None)
Quarter: 2012Q3

REPORT INFORMATION
  Report Type: 
  Country: None (occurrence: None)
  Receive Date: 20120803
  Receipt Date: 20120716
  Transmission Date: 20120928
  Serious: No
  Sender: FDA-Public Use
  Company Number: US-ABBOTT-12P-163-0957153-00

PATIENT
  Sex: Female
  Weight: 69.008 kg

DRUGS (4)
  1. NIASPAN [Suspect]
     Dates: start: 20120715
  2. THYROID TAB [Concomitant]
     Indication: PRODUCT USED FOR UNKNOWN INDICATION
  3. ASPIRIN [Concomitant]
     Indication: PRODUCT USED FOR UNKNOWN INDICATION
  4. NIASPAN [Suspect]
     Indication: HIGH DENSITY LIPOPROTEIN DECREASED
     Dates: start: 20110101, end: 20120601

REACTIONS (6)
  - HOT FLUSH [None]
  - FEELING HOT [None]
  - ERYTHEMA [None]
  - RASH ERYTHEMATOUS [None]
  - PRURITUS [None]
  - INAPPROPRIATE SCHEDULE OF DRUG ADMINISTRATION [None]
